FAERS Safety Report 20292294 (Version 1)
Quarter: 2022Q1

REPORT INFORMATION
  Report Type: Spontaneous
  Country: CN (occurrence: CN)
  Receive Date: 20220104
  Receipt Date: 20220104
  Transmission Date: 20220424
  Serious: Yes (Other)
  Sender: FDA-Public Use
  Company Number: CN-PFIZER INC-202101843741

PATIENT
  Age: 54 Year
  Sex: Male
  Weight: 53 kg

DRUGS (1)
  1. IDARUBICIN [Suspect]
     Active Substance: IDARUBICIN
     Indication: Chemotherapy
     Dosage: 3.27 G, 2X/DAY
     Route: 041
     Dates: start: 20211201, end: 20211214

REACTIONS (3)
  - Cytopenia [Recovering/Resolving]
  - Myelosuppression [Recovering/Resolving]
  - Infection [Recovering/Resolving]

NARRATIVE: CASE EVENT DATE: 20211214
